FAERS Safety Report 7068202-6 (Version None)
Quarter: 2010Q4

REPORT INFORMATION
  Report Type: 
  Country: None (occurrence: None)
  Receive Date: 20101028
  Receipt Date: 20091022
  Transmission Date: 20110411
  Serious: No
  Sender: FDA-Public Use
  Company Number: US-MYLANLABS-2009S1018533

PATIENT
  Age: 54 Year
  Sex: Female
  Weight: 56.7 kg

DRUGS (9)
  1. HYDROMORPHONE HCL [Suspect]
     Indication: MYALGIA
     Dosage: PRN
     Route: 048
     Dates: start: 20090601, end: 20090901
  2. HYDROMORPHONE HCL [Suspect]
     Indication: NEURALGIA
     Dosage: PRN
     Route: 048
     Dates: start: 20090601, end: 20090901
  3. GABAPENTIN [Suspect]
     Indication: MYALGIA
     Dosage: PRN
     Route: 048
     Dates: start: 20090601, end: 20090901
  4. GABAPENTIN [Suspect]
     Indication: NEURALGIA
     Dosage: PRN
     Route: 048
     Dates: start: 20090601, end: 20090901
  5. DIAZEPAM [Suspect]
     Indication: MYALGIA
     Route: 048
     Dates: start: 20090601
  6. DIAZEPAM [Suspect]
     Indication: NEURALGIA
     Route: 048
     Dates: start: 20090601
  7. FENTANYL TRANSDERMAL SYSTEM [Suspect]
     Indication: MYALGIA
     Dosage: CHANGED Q72H
     Route: 062
     Dates: start: 20090801
  8. FENTANYL TRANSDERMAL SYSTEM [Suspect]
     Indication: NEURALGIA
     Dosage: CHANGED Q72H
     Route: 062
     Dates: start: 20090801
  9. ACETAMINOPHEN [Concomitant]
     Indication: PAIN
     Route: 048

REACTIONS (6)
  - CHILLS [None]
  - DIZZINESS [None]
  - HEADACHE [None]
  - HYPERHIDROSIS [None]
  - NAUSEA [None]
  - VISION BLURRED [None]
